FAERS Safety Report 4454712-4 (Version None)
Quarter: 2004Q3

REPORT INFORMATION
  Report Type: 
  Country: None (occurrence: None)
  Receive Date: 20040825
  Receipt Date: 20040304
  Transmission Date: 20050211
  Serious: Yes (Other)
  Sender: FDA-Public Use
  Company Number: 23253 (0)

PATIENT
  Age: 73 Year
  Sex: Female

DRUGS (4)
  1. TAMBOCOR [Suspect]
     Indication: ATRIAL FIBRILLATION
     Dosage: 50 MG, 1 IN 1 DAY (S)), ORAL
     Route: 048
     Dates: start: 19990101
  2. LOPRESSORE [Concomitant]
  3. XANAX [Concomitant]
  4. AMBIEN [Concomitant]

REACTIONS (3)
  - BLOOD DISORDER [None]
  - LEUKOPENIA [None]
  - THROMBOCYTOPENIA [None]
